FAERS Safety Report 13806340 (Version 17)
Quarter: 2022Q3

REPORT INFORMATION
  Report Type: Spontaneous
  Country: JP (occurrence: JP)
  Receive Date: 20170728
  Receipt Date: 20220818
  Transmission Date: 20221026
  Serious: Yes (Death, Hospitalization, Other)
  Sender: FDA-Public Use
  Company Number: JP-PFIZER INC-2017326993

PATIENT
  Age: 3 Year
  Sex: Female
  Weight: 13.6 kg

DRUGS (9)
  1. SIROLIMUS [Suspect]
     Active Substance: SIROLIMUS
     Indication: Lymphangioma
     Dosage: UNK
     Route: 048
     Dates: start: 201704
  2. PROPRANOLOL HYDROCHLORIDE [Concomitant]
     Active Substance: PROPRANOLOL HYDROCHLORIDE
     Indication: Lymphangioma
     Dosage: 60 MG, UNK
     Route: 048
     Dates: start: 20170401
  3. PROPRANOLOL HYDROCHLORIDE [Concomitant]
     Active Substance: PROPRANOLOL HYDROCHLORIDE
     Indication: Hypertension
  4. PREDNISOLONE [Concomitant]
     Active Substance: PREDNISOLONE
     Indication: Lymphangioma
     Dosage: UNK
     Route: 048
  5. LEVOCARNITINE HYDROCHLORIDE [Concomitant]
     Active Substance: LEVOCARNITINE HYDROCHLORIDE
     Indication: Carnitine deficiency
     Dosage: 400 MG, UNK
     Route: 048
     Dates: start: 20180724
  6. FUROSEMIDE [Concomitant]
     Active Substance: FUROSEMIDE
     Indication: Oedema
     Dosage: 12 MG, UNK
     Route: 048
     Dates: start: 20170401
  7. SULFAMETHOXAZOLE\TRIMETHOPRIM [Concomitant]
     Active Substance: SULFAMETHOXAZOLE\TRIMETHOPRIM
     Indication: Prophylaxis
     Dosage: 0.6 G, UNK
     Route: 048
     Dates: start: 20170329
  8. CARBOCYSTEINE [Concomitant]
     Active Substance: CARBOCYSTEINE
     Indication: Productive cough
     Dosage: 0.7 G, UNK
     Route: 048
     Dates: start: 20190217
  9. BISOLVON [Concomitant]
     Active Substance: BROMHEXINE HYDROCHLORIDE
     Indication: Productive cough
     Dosage: 0.2 G, UNK
     Route: 048
     Dates: start: 20190217

REACTIONS (7)
  - Respiratory failure [Fatal]
  - Drug level increased [Unknown]
  - Hyperlipidaemia [Unknown]
  - Pancreatitis relapsing [Unknown]
  - Gastrointestinal hypomotility [Unknown]
  - Pneumothorax spontaneous [Unknown]
  - Off label use [Unknown]

NARRATIVE: CASE EVENT DATE: 20190212
